FAERS Safety Report 14914146 (Version 1)
Quarter: 2018Q2

REPORT INFORMATION
  Report Type: Spontaneous
  Country: US (occurrence: US)
  Receive Date: 20180518
  Receipt Date: 20180518
  Transmission Date: 20180711
  Serious: No
  Sender: FDA-Public Use
  Company Number: US-AKRON, INC.-2048065

PATIENT
  Sex: Male

DRUGS (1)
  1. THERATEARS LUBRICANT EYE [Suspect]
     Active Substance: CARBOXYMETHYLCELLULOSE SODIUM
     Route: 047

REACTIONS (7)
  - Eye injury [Not Recovered/Not Resolved]
  - Eye pain [Unknown]
  - Visual impairment [Unknown]
  - Ocular hyperaemia [Unknown]
  - Superficial injury of eye [Unknown]
  - Foreign body sensation in eyes [Unknown]
  - Parophthalmia [Unknown]
